FAERS Safety Report 11878127 (Version 1)
Quarter: 2015Q4

REPORT INFORMATION
  Report Type: Spontaneous
  Country: US (occurrence: None)
  Receive Date: 20151229
  Receipt Date: 20151229
  Transmission Date: 20160305
  Serious: Yes (Other)
  Sender: FDA-Public Use
  Company Number: None

PATIENT
  Age: 72 Year
  Sex: Female
  Weight: 76.2 kg

DRUGS (8)
  1. LANTUS [Concomitant]
     Active Substance: INSULIN GLARGINE
  2. NOVOLOG [Concomitant]
     Active Substance: INSULIN ASPART
  3. ELIQUIS [Concomitant]
     Active Substance: APIXABAN
  4. CALCIUM [Concomitant]
     Active Substance: CALCIUM
  5. BUPSOPION [Concomitant]
  6. SOTALOL. [Concomitant]
     Active Substance: SOTALOL
  7. MULTI VITAMIN [Concomitant]
     Active Substance: VITAMINS
  8. METHIMAZOLE. [Suspect]
     Active Substance: METHIMAZOLE
     Indication: HYPERTHYROIDISM
     Dosage: BY MOUTH
     Dates: start: 20150905, end: 20151204

REACTIONS (7)
  - Alopecia [None]
  - Impaired healing [None]
  - Skin ulcer [None]
  - Insomnia [None]
  - Depression [None]
  - Weight increased [None]
  - Hypersomnia [None]

NARRATIVE: CASE EVENT DATE: 20150905
